FAERS Safety Report 8109939 (Version 2)
Quarter: 2012Q4

REPORT INFORMATION
  Report Type: 
  Country: US (occurrence: US)
  Receive Date: 20110829
  Receipt Date: 20121009
  Transmission Date: 20130627
  Serious: Yes (Hospitalization)
  Sender: FDA-Public Use
  Company Number: US-BIOGENIDEC-2011BI031748

PATIENT
  Age: 44 Year
  Sex: Female

DRUGS (5)
  1. TYSABRI [Suspect]
     Indication: MULTIPLE SCLEROSIS
     Route: 042
     Dates: start: 200910
  2. VITAMIN D [Concomitant]
     Indication: MEDICAL DIET
  3. LISINOPRIL [Concomitant]
     Indication: HYPERTENSION
  4. VITAMIN B12 [Concomitant]
     Indication: MEDICAL DIET
  5. MULTIVITAMINS [Concomitant]
     Indication: MEDICAL DIET

REACTIONS (1)
  - Grand mal convulsion [Recovered/Resolved]
